FAERS Safety Report 9029965 (Version 5)
Quarter: 2013Q4

REPORT INFORMATION
  Report Type: Spontaneous
  Country: US (occurrence: US)
  Receive Date: 20130125
  Receipt Date: 20131219
  Transmission Date: 20140711
  Serious: Yes (Hospitalization)
  Sender: FDA-Public Use
  Company Number: US-BIOGENIDEC-2013BI005437

PATIENT
  Age: 48 Year
  Sex: Female

DRUGS (1)
  1. AVONEX [Suspect]
     Indication: MULTIPLE SCLEROSIS
     Route: 030
     Dates: start: 20121116

REACTIONS (6)
  - Relapsing-remitting multiple sclerosis [Recovered/Resolved]
  - Multiple sclerosis relapse [Recovered/Resolved]
  - Muscle atrophy [Not Recovered/Not Resolved]
  - Vision blurred [Recovered/Resolved]
  - Fall [Recovered/Resolved]
  - Muscle spasms [Not Recovered/Not Resolved]
